FAERS Safety Report 7445003-8 (Version None)
Quarter: 2011Q2

REPORT INFORMATION
  Report Type: 
  Country: None (occurrence: None)
  Receive Date: 20110429
  Receipt Date: 20110417
  Transmission Date: 20111010
  Serious: Yes (Other)
  Sender: FDA-Public Use
  Company Number: DE-BRISTOL-MYERS SQUIBB COMPANY-15656168

PATIENT
  Age: 17 Year
  Sex: Female
  Weight: 101 kg

DRUGS (6)
  1. CITALOPRAM [Suspect]
     Dosage: 7 TABLETS CITALOPRAM (IN TOTAL 140MG)
  2. GASTROZEPIN [Suspect]
     Dosage: 1 DF: 14 TABLETS GASTROZEPIN 50(IN TOTAL 700MG)
  3. OXYMEDIN [Suspect]
     Dosage: 1 DF: 14 TABS 70 MG
  4. ABILIFY [Suspect]
  5. LEPONEX [Suspect]
     Dosage: TABLETS LEPONEX 50,100.
  6. SIOFOR [Suspect]
     Dosage: 14 TABLETS SIOFOR 850 (METFORMIN, IN TOTAL 11,900MG)

REACTIONS (6)
  - SOMNOLENCE [None]
  - OPHTHALMOPLEGIA [None]
  - TACHYCARDIA [None]
  - DIASTOLIC HYPOTENSION [None]
  - SUICIDE ATTEMPT [None]
  - MULTIPLE DRUG OVERDOSE [None]
